FAERS Safety Report 7771527-X (Version None)
Quarter: 2011Q3

REPORT INFORMATION
  Report Type: 
  Country: None (occurrence: None)
  Receive Date: 20110922
  Receipt Date: 20100922
  Transmission Date: 20111222
  Serious: No
  Sender: FDA-Public Use
  Company Number: US-ASTRAZENECA-2006UW07950

PATIENT
  Age: 17844 Day
  Sex: Male
  Weight: 121.6 kg

DRUGS (36)
  1. SEROQUEL [Suspect]
     Dosage: 25 MG TO 100 MG
     Route: 048
     Dates: start: 20041117
  2. SEROQUEL [Suspect]
     Route: 048
     Dates: start: 20060401, end: 20070701
  3. SEROQUEL [Suspect]
     Dosage: 100 TO 400 MG
     Route: 048
     Dates: start: 20060417
  4. CLONIDINE HCL [Concomitant]
     Dosage: 0.1 MG THREE TABLETS TWICE A DAY
     Dates: start: 20060417
  5. DIPHENHYDRAMINE HCL [Concomitant]
     Route: 048
     Dates: start: 20040101
  6. SEROQUEL [Suspect]
     Route: 048
     Dates: start: 20050706, end: 20050707
  7. FOSINOPRIL NA [Concomitant]
     Route: 048
     Dates: start: 20040101
  8. SILDENAFIL CITRATE [Concomitant]
     Dosage: 100 MG TAB ONE-HALF TABLET BY MOUTH AS NEEDED
     Route: 048
     Dates: start: 20040101
  9. SEROQUEL [Suspect]
     Indication: NERVOUSNESS
     Route: 048
     Dates: start: 20040101
  10. SEROQUEL [Suspect]
     Dosage: 25 MG TO 100 MG
     Route: 048
     Dates: start: 20041117
  11. SEROQUEL [Suspect]
     Dosage: 100 TO 400 MG
     Route: 048
     Dates: start: 20060417
  12. SEROQUEL [Suspect]
     Route: 048
     Dates: start: 20050706, end: 20050707
  13. SIMVASTATIN [Concomitant]
     Indication: BLOOD CHOLESTEROL ABNORMAL
     Route: 048
     Dates: start: 20060417
  14. CLONIDINE HCL [Concomitant]
     Dosage: 0.1 MG THREE TABLETS TWICE A DAY
     Dates: start: 20060417
  15. CYCLOBENZAPRINE HCL [Concomitant]
     Route: 048
     Dates: start: 20040101
  16. METFORMIN HCL [Concomitant]
     Route: 048
     Dates: start: 20050706, end: 20050707
  17. CLONIDINE [Concomitant]
     Route: 048
     Dates: start: 20050706, end: 20050707
  18. SEROQUEL [Suspect]
     Indication: POST-TRAUMATIC STRESS DISORDER
     Route: 048
     Dates: start: 20040101
  19. CLONIDINE HCL [Concomitant]
     Indication: CARDIAC DISORDER
     Dosage: 0.1 MG THREE TABLETS TWICE A DAY
     Route: 048
     Dates: start: 20040101
  20. CLONIDINE HCL [Concomitant]
     Indication: BLOOD PRESSURE
     Dosage: 0.1 MG THREE TABLETS TWICE A DAY
     Route: 048
     Dates: start: 20040101
  21. LOXAPINE SUCCINATE [Concomitant]
     Dosage: 25 MG QHS PRN
     Route: 048
     Dates: start: 20050706, end: 20050707
  22. SEROQUEL [Suspect]
     Dosage: 100 TO 400 MG
     Route: 048
     Dates: start: 20060417
  23. FUROSEMIDE [Concomitant]
     Dosage: 60 MG TO 80 MG
     Route: 048
     Dates: start: 20040101
  24. SEROQUEL [Suspect]
     Route: 048
     Dates: start: 20050706, end: 20050707
  25. SEROQUEL [Suspect]
     Route: 048
     Dates: start: 20060401, end: 20070701
  26. SEROQUEL [Suspect]
     Route: 048
     Dates: start: 20060401, end: 20070701
  27. VALSARTAN [Concomitant]
     Indication: CARDIAC DISORDER
     Route: 048
     Dates: start: 20060417
  28. VALSARTAN [Concomitant]
     Indication: BLOOD PRESSURE
     Route: 048
     Dates: start: 20060417
  29. FUROSEMIDE [Concomitant]
     Route: 048
     Dates: start: 20050707, end: 20050707
  30. HYDROCODONE BITARTRATE AND ACETAMINOPHEN [Concomitant]
     Indication: PAIN
     Dosage: 7.5/500 MG,TAKE TWO TABLET BY MOUTH THREE TIMES A DAY
     Route: 048
     Dates: start: 20040101
  31. HYDROCODONE BITARTRATE AND ACETAMINOPHEN [Concomitant]
     Dosage: 7.5/500 MG, TWO TABLETS TWICE A DAY
  32. SEROQUEL [Suspect]
     Indication: MENTAL DISORDER
     Route: 048
     Dates: start: 20040101
  33. SEROQUEL [Suspect]
     Dosage: 25 MG TO 100 MG
     Route: 048
     Dates: start: 20041117
  34. GABAPENTIN [Concomitant]
     Indication: CONVULSION
     Route: 048
     Dates: start: 20040101
  35. GABAPENTIN [Concomitant]
     Dosage: 400 MG 1 CAPSULE THREE TIMES A DAY 100 MG 2 CAPSULES
     Dates: start: 20060417
  36. RANITIDINE HCL [Concomitant]
     Dosage: 150 MG TAKE TWO TABLET BY MOUTH EVERY MORNING AND ONE TABLET EVERY EVENING
     Route: 048
     Dates: start: 20040101

REACTIONS (6)
  - TYPE V HYPERLIPIDAEMIA [None]
  - BLOOD CHOLESTEROL INCREASED [None]
  - TYPE 1 DIABETES MELLITUS [None]
  - TYPE 2 DIABETES MELLITUS [None]
  - GLUCOSE TOLERANCE IMPAIRED [None]
  - DIABETES MELLITUS INADEQUATE CONTROL [None]
